FAERS Safety Report 11465523 (Version 2)
Quarter: 2015Q3

REPORT INFORMATION
  Report Type: Report from Study
  Country: RU (occurrence: RU)
  Receive Date: 20150907
  Receipt Date: 20150911
  Transmission Date: 20151125
  Serious: Yes (Life-Threatening, Other)
  Sender: FDA-Public Use
  Company Number: RU-ASTRAZENECA-2015SE84419

PATIENT
  Age: 25362 Day
  Sex: Female

DRUGS (15)
  1. TICAGRELOR [Suspect]
     Active Substance: TICAGRELOR
     Indication: ISCHAEMIC HEART DISEASE PROPHYLAXIS
     Dosage: LOADING DOSE
     Route: 048
     Dates: start: 20150817
  2. FELODIPI [Concomitant]
     Dates: end: 20150816
  3. OMEPRAZOLE. [Concomitant]
     Active Substance: OMEPRAZOLE
     Dates: start: 20150817, end: 20150830
  4. AMLODIPINE [Concomitant]
     Active Substance: AMLODIPINE BESYLATE
     Dates: start: 20150817, end: 20150824
  5. MANINILI [Concomitant]
     Dates: end: 20150826
  6. MGSO4 [Concomitant]
     Active Substance: MAGNESIUM SULFATE
     Dates: start: 20150816, end: 20150820
  7. CERECARDI [Concomitant]
     Dates: start: 20150816, end: 20150827
  8. CERAXONI [Concomitant]
     Dates: start: 20150816, end: 20150827
  9. ENALAPRIL [Concomitant]
     Active Substance: ENALAPRIL
     Dates: start: 20150816
  10. LORISTA [Concomitant]
     Active Substance: LOSARTAN POTASSIUM
     Dates: end: 20150816
  11. TICAGRELOR [Suspect]
     Active Substance: TICAGRELOR
     Indication: ISCHAEMIC HEART DISEASE PROPHYLAXIS
     Dosage: MAINTENANCE DOSE
     Route: 048
     Dates: start: 20150818, end: 20150827
  12. GLUCOPHAGE [Concomitant]
     Active Substance: METFORMIN HYDROCHLORIDE
  13. GLICINI [Concomitant]
     Dates: start: 20150817
  14. STUDY PROCEDURE [Suspect]
     Active Substance: INVESTIGATIONAL PRODUCT
     Indication: ISCHAEMIC HEART DISEASE PROPHYLAXIS
     Route: 065
  15. VEROSHPIRONI [Concomitant]
     Dates: start: 20150816

REACTIONS (1)
  - Thrombocytopenia [Not Recovered/Not Resolved]

NARRATIVE: CASE EVENT DATE: 20150818
